FAERS Safety Report 9026628 (Version 1)
Quarter: 2013Q1

REPORT INFORMATION
  Report Type: Spontaneous
  Country: US (occurrence: None)
  Receive Date: 20130114
  Receipt Date: 20130114
  Transmission Date: 20140127
  Serious: Yes (Hospitalization)
  Sender: FDA-Public Use
  Company Number: None

PATIENT
  Age: 43 Year
  Sex: Female
  Weight: 49.44 kg

DRUGS (1)
  1. EXCEDRIN [Suspect]
     Indication: MIGRAINE
     Dosage: 2 DOSES MONTHLY
     Dates: start: 20120525

REACTIONS (3)
  - Nausea [None]
  - Diarrhoea [None]
  - Pyrexia [None]
